FAERS Safety Report 4306990-X (Version None)
Quarter: 2004Q1

REPORT INFORMATION
  Report Type: 
  Country: None (occurrence: None)
  Receive Date: 20040227
  Receipt Date: 20040218
  Transmission Date: 20041129
  Serious: Yes (Death)
  Sender: FDA-Public Use
  Company Number: JP-BRISTOL-MYERS SQUIBB COMPANY-12511580

PATIENT
  Age: 85 Year
  Sex: Female

DRUGS (2)
  1. VEPESID [Suspect]
     Indication: B-CELL LYMPHOMA
     Route: 048
  2. VEPESID [Suspect]
     Indication: B-CELL LYMPHOMA
     Route: 042

REACTIONS (6)
  - BONE MARROW DEPRESSION [None]
  - DEATH [None]
  - DYSPHAGIA [None]
  - PNEUMONIA [None]
  - PYREXIA [None]
  - RENAL FAILURE [None]
